FAERS Safety Report 16165148 (Version 5)
Quarter: 2019Q2

REPORT INFORMATION
  Report Type: Report from Study
  Country: US (occurrence: US)
  Receive Date: 20190405
  Receipt Date: 20190531
  Transmission Date: 20190711
  Serious: Yes (Hospitalization, Other)
  Sender: FDA-Public Use
  Company Number: US-ACTELION-A-US2018-171876

PATIENT
  Age: 53 Year
  Sex: Female

DRUGS (25)
  1. METOPROLOL. [Concomitant]
     Active Substance: METOPROLOL
  2. PRAVASTATIN. [Concomitant]
     Active Substance: PRAVASTATIN
  3. SOFOSBUVIR W/VELPATASVIR [Concomitant]
     Active Substance: SOFOSBUVIR\VELPATASVIR
  4. ASPIRIN. [Concomitant]
     Active Substance: ASPIRIN
  5. OPSUMIT [Suspect]
     Active Substance: MACITENTAN
     Indication: PULMONARY ARTERIAL HYPERTENSION
     Dosage: 10 MG, QD
     Route: 048
     Dates: start: 20171216
  6. INSULIN [Concomitant]
     Active Substance: INSULIN NOS
  7. CLINDAMYCIN. [Concomitant]
     Active Substance: CLINDAMYCIN
  8. ONDANSETRON [Concomitant]
     Active Substance: ONDANSETRON
  9. METFORMIN [Concomitant]
     Active Substance: METFORMIN HYDROCHLORIDE
     Dosage: 500 MG, UNK
  10. VICTOZA [Concomitant]
     Active Substance: LIRAGLUTIDE
     Dosage: 18 MG, UNK
  11. VALGANCICLOVIR. [Concomitant]
     Active Substance: VALGANCICLOVIR
     Dosage: 450 MG, UNK
  12. OMEPRAZOLE. [Concomitant]
     Active Substance: OMEPRAZOLE
  13. URSODIOL. [Concomitant]
     Active Substance: URSODIOL
  14. ALDACTONE [Concomitant]
     Active Substance: SPIRONOLACTONE
  15. TACROLIMUS. [Concomitant]
     Active Substance: TACROLIMUS
     Dosage: 1 MG, UNK
  16. FUROSEMIDE. [Concomitant]
     Active Substance: FUROSEMIDE
     Dosage: 40 MG, UNK
  17. PREDNISONE. [Concomitant]
     Active Substance: PREDNISONE
  18. MAGNESIUM OXIDE. [Concomitant]
     Active Substance: MAGNESIUM OXIDE
  19. GLIPIZIDE. [Concomitant]
     Active Substance: GLIPIZIDE
     Dosage: 5 MG, UNK
  20. PROPRANOLOL [Concomitant]
     Active Substance: PROPRANOLOL HYDROCHLORIDE
     Dosage: 60 MG, UNK
  21. OXYCODONE [Concomitant]
     Active Substance: OXYCODONE
  22. ESCITALOPRAM [Concomitant]
     Active Substance: ESCITALOPRAM OXALATE
     Dosage: 10 MG, UNK
  23. ATORVASTATIN [Concomitant]
     Active Substance: ATORVASTATIN
  24. LACTULOSE. [Concomitant]
     Active Substance: LACTULOSE
  25. TRADJENTA [Concomitant]
     Active Substance: LINAGLIPTIN

REACTIONS (8)
  - Memory impairment [Not Recovered/Not Resolved]
  - Liver transplant [Unknown]
  - Product dose omission [Unknown]
  - Pyrexia [Unknown]
  - Complications of transplanted liver [Unknown]
  - Vomiting [Unknown]
  - Clostridium difficile infection [Unknown]
  - Seizure [Not Recovered/Not Resolved]

NARRATIVE: CASE EVENT DATE: 201804
